FAERS Safety Report 6539446-4 (Version None)
Quarter: 2010Q1

REPORT INFORMATION
  Report Type: 
  Country: None (occurrence: None)
  Receive Date: 20100115
  Receipt Date: 20100112
  Transmission Date: 20100710
  Serious: Yes (Hospitalization)
  Sender: FDA-Public Use
  Company Number: GB-ROCHE-542140

PATIENT
  Sex: Female
  Weight: 70 kg

DRUGS (4)
  1. BEVACIZUMAB [Suspect]
     Dosage: FREQUENCY: PER PROTOCOL. LAST DOSE PRIOR TO EVENT TAKEN ON 06-DEC-2007.
     Route: 042
     Dates: start: 20070531
  2. CARBOPLATIN [Suspect]
     Dosage: LAST DOSE PRIOR TO EVENT TAKEN ON 13-SEP-2007.
     Route: 042
     Dates: start: 20070531
  3. PACLITAXEL [Suspect]
     Dosage: LAST DOSE PRIOR TO EVENT TAKEN ON 2 AUG 2007. FORM: INFUSION (PER PROTOCOL).
     Route: 042
     Dates: start: 20070531
  4. OMEPRAZOLE [Concomitant]
     Route: 048
     Dates: start: 20071119

REACTIONS (1)
  - HERPES ZOSTER [None]
